FAERS Safety Report 10476717 (Version 1)
Quarter: 2014Q3

REPORT INFORMATION
  Report Type: Spontaneous
  Country: US (occurrence: US)
  Receive Date: 20140925
  Receipt Date: 20140925
  Transmission Date: 20150326
  Serious: Yes (Death, Other)
  Sender: FDA-Public Use
  Company Number: PHEH2014US019121

PATIENT
  Sex: Male

DRUGS (3)
  1. AREDIA [Suspect]
     Active Substance: PAMIDRONATE DISODIUM
     Indication: PLASMA CELL MYELOMA
     Route: 041
     Dates: start: 2003, end: 2004
  2. THALOMID [Concomitant]
     Active Substance: THALIDOMIDE
     Indication: PLASMA CELL MYELOMA
     Dosage: 100 MG
     Route: 048
  3. ZOMETA [Suspect]
     Active Substance: ZOLEDRONIC ACID
     Indication: PLASMA CELL MYELOMA
     Route: 041
     Dates: start: 2003, end: 2004

REACTIONS (14)
  - Cerebrovascular accident [Unknown]
  - Speech disorder [Unknown]
  - Oedema mouth [Unknown]
  - Jaw fracture [Unknown]
  - Fall [Unknown]
  - Deformity [Unknown]
  - Coma [Unknown]
  - Tooth loss [Unknown]
  - Hypoaesthesia oral [Unknown]
  - Cardiac failure congestive [Fatal]
  - Hypertension [Unknown]
  - Convulsion [Unknown]
  - Mastication disorder [Unknown]
  - Coronary artery disease [Unknown]
